FAERS Safety Report 11200436 (Version 2)
Quarter: 2015Q3

REPORT INFORMATION
  Report Type: Spontaneous
  Country: JP (occurrence: JP)
  Receive Date: 20150618
  Receipt Date: 20150708
  Transmission Date: 20151125
  Serious: Yes (Death)
  Sender: FDA-Public Use
  Company Number: JP-JNJFOC-20150610344

PATIENT
  Age: 75 Year
  Sex: Male

DRUGS (4)
  1. ONEDURO [Suspect]
     Active Substance: FENTANYL
     Indication: CANCER PAIN
     Dosage: 1 AND 1/2 OF 12. 5 MCG/HR
     Route: 062
     Dates: start: 201506
  2. ONEDURO [Suspect]
     Active Substance: FENTANYL
     Indication: CANCER PAIN
     Dosage: 12.5 MCG/HR 2 PATCHES
     Route: 062
  3. MORPHINE HYDROCHLORIDE [Concomitant]
     Active Substance: MORPHINE HYDROCHLORIDE
     Indication: PRODUCT USED FOR UNKNOWN INDICATION
     Route: 054
  4. ONEDURO [Suspect]
     Active Substance: FENTANYL
     Indication: CANCER PAIN
     Route: 062

REACTIONS (3)
  - Inadequate analgesia [Recovered/Resolved]
  - Neoplasm malignant [Fatal]
  - Wrong technique in product usage process [Unknown]

NARRATIVE: CASE EVENT DATE: 201506
